FAERS Safety Report 5249385-7 (Version None)
Quarter: 2007Q1

REPORT INFORMATION
  Report Type: 
  Country: None (occurrence: None)
  Receive Date: 20070223
  Receipt Date: 20070214
  Transmission Date: 20070707
  Serious: Yes (Other)
  Sender: FDA-Public Use
  Company Number: TCI2007A00679

PATIENT
  Sex: Female

DRUGS (3)
  1. LANSOPRAZOLE [Suspect]
     Indication: HELICOBACTER INFECTION
     Dosage: 60 MG (30 MG, 2 IN 1 D)
     Route: 048
  2. CLARITHROMYCIN [Concomitant]
  3. SAWACILLIN (AMOXICILLIN TRIHYDRATE) (CAPSULES) [Concomitant]

REACTIONS (3)
  - CONGENITAL GENITAL MALFORMATION MALE [None]
  - DRUG EXPOSURE DURING PREGNANCY [None]
  - STILLBIRTH [None]
